FAERS Safety Report 10209835 (Version 1)
Quarter: 2014Q2

REPORT INFORMATION
  Report Type: Spontaneous
  Country: CH (occurrence: CH)
  Receive Date: 20140602
  Receipt Date: 20140602
  Transmission Date: 20141212
  Serious: Yes (Death, Hospitalization, Other)
  Sender: FDA-Public Use
  Company Number: CH-ROCHE-1407111

PATIENT
  Age: 85 Year
  Sex: Male
  Weight: 56 kg

DRUGS (7)
  1. CELLCEPT [Suspect]
     Indication: INTERSTITIAL LUNG DISEASE
     Route: 048
     Dates: start: 2012, end: 201402
  2. REVATIO [Concomitant]
     Route: 048
     Dates: end: 201402
  3. TOREM [Concomitant]
     Route: 048
     Dates: end: 201402
  4. LYRICA [Concomitant]
     Route: 048
     Dates: end: 201402
  5. STILNOX [Concomitant]
     Route: 048
     Dates: end: 201402
  6. FRAGMIN [Concomitant]
     Route: 058
     Dates: end: 201202
  7. OXYGEN [Concomitant]
     Route: 065
     Dates: end: 201402

REACTIONS (4)
  - Pneumonia fungal [Fatal]
  - Pulmonary sepsis [Fatal]
  - Right ventricular failure [Fatal]
  - Pancytopenia [Unknown]
